FAERS Safety Report 4532089-3 (Version None)
Quarter: 2004Q4

REPORT INFORMATION
  Report Type: 
  Country: None (occurrence: None)
  Receive Date: 20041217
  Receipt Date: 20041210
  Transmission Date: 20050328
  Serious: Yes (Hospitalization, Other)
  Sender: FDA-Public Use
  Company Number: 2004-01-0173

PATIENT
  Age: 44 Year
  Sex: Female

DRUGS (8)
  1. INTRON A [Suspect]
     Indication: KAPOSI'S SARCOMA
     Dosage: SEE IMAGE
     Route: 058
     Dates: start: 20030214, end: 20030217
  2. INTRON A [Suspect]
     Indication: KAPOSI'S SARCOMA
     Dosage: SEE IMAGE
     Route: 058
     Dates: start: 20030214, end: 20030224
  3. INTRON A [Suspect]
     Indication: KAPOSI'S SARCOMA
     Dosage: SEE IMAGE
     Route: 058
     Dates: start: 20030217, end: 20030224
  4. TRIZIVIR [Suspect]
     Indication: HIV INFECTION
     Dates: start: 20030110, end: 20030218
  5. OPIATE AND OPIOID ANELGESIC [Concomitant]
  6. EPIVIR [Concomitant]
  7. ZERIT [Concomitant]
  8. ZIAGEN [Concomitant]

REACTIONS (16)
  - ABDOMINAL PAIN [None]
  - ANTIBODY TEST POSITIVE [None]
  - ASCITES [None]
  - BLOOD AMYLASE INCREASED [None]
  - DIARRHOEA [None]
  - HAEMOLYTIC ANAEMIA [None]
  - HAEMOLYTIC URAEMIC SYNDROME [None]
  - HAPTOGLOBIN [None]
  - HYPERKALAEMIA [None]
  - INTESTINAL ISCHAEMIA [None]
  - LIPASE INCREASED [None]
  - MESENTERIC OCCLUSION [None]
  - PROTEINURIA [None]
  - RENAL FAILURE ACUTE [None]
  - THROMBOCYTOPENIA [None]
  - VOMITING [None]
